FAERS Safety Report 19465067 (Version 2)
Quarter: 2022Q1

REPORT INFORMATION
  Report Type: 
  Country: US (occurrence: US)
  Receive Date: 20210627
  Receipt Date: 20220216
  Transmission Date: 20220424
  Serious: Yes (Hospitalization)
  Sender: FDA-Public Use
  Company Number: US-FRESENIUS MEDICAL CARE RENAL THERAPIES GROUP-FMC-2106-000878

PATIENT
  Age: 69 Year
  Sex: Male
  Weight: 110 kg

DRUGS (3)
  1. DELFLEX WITH DEXTROSE 1.5% LOW MAGNESIUM [Suspect]
     Active Substance: CALCIUM CHLORIDE\DEXTROSE\MAGNESIUM CHLORIDE\SODIUM CHLORIDE\SODIUM LACTATE
     Indication: End stage renal disease
     Dosage: EXCHANGES = 3, FILL VOLUME = 3000 ML, DWELL TIME = 6.0 HOURS, LAST FILL = N/A, NIGHTTIME DWELL = 300
     Route: 033
     Dates: start: 20181214
  2. DELFLEX WITH DEXTROSE 2.5% LOW MAGNESIUM [Suspect]
     Active Substance: CALCIUM CHLORIDE\DEXTROSE\MAGNESIUM CHLORIDE\SODIUM CHLORIDE\SODIUM LACTATE
     Indication: End stage renal disease
     Dosage: EXCHANGES = 3, FILL VOLUME = 3000 ML, DWELL TIME = 6.0 HOURS, LAST FILL = N/A, NIGHTTIME DWELL = 300
     Route: 033
     Dates: start: 20181214
  3. DELFLEX WITH DEXTROSE 4.25% [Suspect]
     Active Substance: CALCIUM CHLORIDE\DEXTROSE\MAGNESIUM CHLORIDE\SODIUM CHLORIDE\SODIUM LACTATE
     Indication: End stage renal disease
     Dosage: EXCHANGES = 3, FILL VOLUME = 3000 ML, DWELL TIME = 6.0 HOURS, LAST FILL = N/A, NIGHTTIME DWELL = 300
     Route: 033
     Dates: start: 20181214

REACTIONS (2)
  - Cellulitis [Unknown]
  - Abdominal pain [Unknown]
